FAERS Safety Report 5109043-6 (Version None)
Quarter: 2006Q3

REPORT INFORMATION
  Report Type: 
  Country: None (occurrence: None)
  Receive Date: 20060918
  Receipt Date: 20060901
  Transmission Date: 20061208
  Serious: Yes (Hospitalization)
  Sender: FDA-Public Use
  Company Number: 2005133344

PATIENT
  Age: 58 Year
  Sex: Male
  Weight: 133.8111 kg

DRUGS (3)
  1. CELEBREX [Suspect]
     Indication: ARTHRITIS
     Dosage: 200 MG(200 MG, 1 IN 1 D), ORAL
     Route: 048
     Dates: start: 19990101
  2. CELEBREX [Suspect]
     Indication: PAIN
     Dosage: 200 MG(200 MG, 1 IN 1 D), ORAL
     Route: 048
     Dates: start: 19990101
  3. VIOXX [Suspect]
     Indication: DRUG USE FOR UNKNOWN INDICATION
     Dosage: 25 MG, ORAL
     Route: 048

REACTIONS (7)
  - ARTERIAL STENOSIS [None]
  - CEREBROVASCULAR ACCIDENT [None]
  - NEPHROLITHIASIS [None]
  - RENAL DISORDER [None]
  - THROMBOSIS [None]
  - TRANSIENT ISCHAEMIC ATTACK [None]
  - VASCULAR INJURY [None]
